FAERS Safety Report 7981390-X (Version None)
Quarter: 2011Q4

REPORT INFORMATION
  Report Type: 
  Country: None (occurrence: None)
  Receive Date: 20111215
  Receipt Date: 20110107
  Transmission Date: 20120403
  Serious: Yes (Death)
  Sender: FDA-Public Use
  Company Number: JP-BAYER-2011-001890

PATIENT
  Age: 78 Year
  Sex: Male

DRUGS (8)
  1. NEXAVAR [Suspect]
     Dosage: 800 MG, QD
     Route: 048
     Dates: start: 20090217, end: 20090316
  2. BETAMETHASONE [Concomitant]
     Dosage: DAILY DOSE .5 MG
     Route: 048
     Dates: start: 20090414
  3. ETODOLAC [Concomitant]
     Dosage: DAILY DOSE 400 MG
     Route: 048
     Dates: start: 20081028
  4. CODEINE PHOSPHATE [Concomitant]
     Dosage: DAILY DOSE 40 MG
     Route: 048
     Dates: start: 20090310
  5. NEXAVAR [Suspect]
     Dosage: 800 MG, QD
     Route: 048
     Dates: start: 20090331
  6. ACETAMINOPHEN [Concomitant]
     Dosage: 500 MG, PRN
     Route: 048
     Dates: start: 20081014, end: 20081027
  7. NEXAVAR [Suspect]
     Indication: RENAL CELL CARCINOMA
     Dosage: 800 MG, QD
     Route: 048
     Dates: start: 20080916, end: 20081215
  8. NEXAVAR [Suspect]
     Dosage: 800 MG, QOD
     Route: 048
     Dates: start: 20090116, end: 20090101

REACTIONS (7)
  - PALMAR-PLANTAR ERYTHRODYSAESTHESIA SYNDROME [None]
  - GASTRITIS [None]
  - EOSINOPHIL COUNT INCREASED [None]
  - BLOOD ALKALINE PHOSPHATASE INCREASED [None]
  - BLOOD LACTATE DEHYDROGENASE INCREASED [None]
  - PROTEINURIA [None]
  - HERPES ZOSTER [None]
